FAERS Safety Report 18948208 (Version 6)
Quarter: 2021Q3

REPORT INFORMATION
  Report Type: Report from Study
  Country: US (occurrence: US)
  Receive Date: 20210226
  Receipt Date: 20210924
  Transmission Date: 20211014
  Serious: Yes (Life-Threatening, Hospitalization, Disabling, Other)
  Sender: FDA-Public Use
  Company Number: US-GILEAD-2021-0514962

PATIENT
  Age: 61 Year
  Sex: Male

DRUGS (36)
  1. FLUOXETINE [Concomitant]
     Active Substance: FLUOXETINE HYDROCHLORIDE
  2. FUROSEMIDE. [Concomitant]
     Active Substance: FUROSEMIDE
  3. ONDANSETRON [Concomitant]
     Active Substance: ONDANSETRON
  4. OXYCODONE [Concomitant]
     Active Substance: OXYCODONE
  5. CARVEDILOL. [Concomitant]
     Active Substance: CARVEDILOL
  6. DAPTOMYCIN. [Concomitant]
     Active Substance: DAPTOMYCIN
  7. PLACEBO [Suspect]
     Active Substance: UNSPECIFIED INGREDIENT
     Indication: COVID-19
     Dosage: UNK, ONCE
     Route: 042
     Dates: start: 20201217
  8. SALBUTAMOL [Concomitant]
     Active Substance: ALBUTEROL
  9. LIDOCAINE. [Concomitant]
     Active Substance: LIDOCAINE
  10. CEFIXIME. [Concomitant]
     Active Substance: CEFIXIME
  11. MELATONIN [Concomitant]
     Active Substance: MELATONIN
  12. AZITHROMYCIN ANHYDROUS. [Concomitant]
     Active Substance: AZITHROMYCIN ANHYDROUS
  13. APIXABAN [Concomitant]
     Active Substance: APIXABAN
  14. CYANOCOBALAMIN. [Concomitant]
     Active Substance: CYANOCOBALAMIN
  15. HYPOCHLOROUS ACID [Concomitant]
     Active Substance: HYPOCHLOROUS ACID
  16. DOCUSATE SODIUM;SENNOSIDE A+B [Concomitant]
     Active Substance: DOCUSATE SODIUM\SENNOSIDES A AND B
  17. IOHEXOL [Concomitant]
     Active Substance: IOHEXOL
  18. PARACETAMOL [Concomitant]
     Active Substance: ACETAMINOPHEN
  19. MACROGOL 3350 [Concomitant]
     Active Substance: POLYETHYLENE GLYCOL 3350
  20. TRAMADOL HYDROCHLORIDE. [Concomitant]
     Active Substance: TRAMADOL HYDROCHLORIDE
  21. LISINOPRIL. [Concomitant]
     Active Substance: LISINOPRIL
  22. OXYCODONE HYDROCHLORIDE. [Concomitant]
     Active Substance: OXYCODONE HYDROCHLORIDE
  23. POTASSIUM CHLORIDE. [Concomitant]
     Active Substance: POTASSIUM CHLORIDE
  24. REMDESIVIR. [Suspect]
     Active Substance: REMDESIVIR
     Indication: COVID-19
     Dosage: UNK, QD
     Route: 042
     Dates: start: 20201217
  25. BENZONATATE. [Concomitant]
     Active Substance: BENZONATATE
  26. CEFEPIME HYDROCHLORIDE. [Concomitant]
     Active Substance: CEFEPIME HYDROCHLORIDE
  27. SODIUM PICOSULFATE [Concomitant]
     Active Substance: SODIUM PICOSULFATE
  28. CEFTRIAXONE SODIUM. [Concomitant]
     Active Substance: CEFTRIAXONE SODIUM
  29. GABAPENTIN. [Concomitant]
     Active Substance: GABAPENTIN
  30. DEXTROMETHORPHAN HYDROBROMIDE AND GUAIFENESIN [Concomitant]
     Active Substance: DEXTROMETHORPHAN HYDROBROMIDE\GUAIFENESIN
  31. KETOTIFEN FUMARATE. [Concomitant]
     Active Substance: KETOTIFEN FUMARATE
  32. OXYCODONE HYDROCHLORIDE;PARACETAMOL [Concomitant]
     Active Substance: ACETAMINOPHEN\OXYCODONE HYDROCHLORIDE
  33. BLINDED INFLIXIMAB [Suspect]
     Active Substance: INFLIXIMAB
     Indication: COVID-19
     Dosage: UNK, ONCE
     Route: 042
     Dates: start: 20201217
  34. DEXAMETHASONE. [Concomitant]
     Active Substance: DEXAMETHASONE
  35. GADOBUTROL. [Concomitant]
     Active Substance: GADOBUTROL
  36. MIDAZOLAM HYDROCHLORIDE. [Concomitant]
     Active Substance: MIDAZOLAM HYDROCHLORIDE

REACTIONS (4)
  - Post-traumatic pain [Not Recovered/Not Resolved]
  - Bacteraemia [Not Recovered/Not Resolved]
  - Osteomyelitis [Recovered/Resolved]
  - Urinary tract infection staphylococcal [Recovering/Resolving]

NARRATIVE: CASE EVENT DATE: 20210107
